FAERS Safety Report 14370978 (Version 1)
Quarter: 2018Q1

REPORT INFORMATION
  Report Type: Spontaneous
  Country: US (occurrence: US)
  Receive Date: 20180110
  Receipt Date: 20180110
  Transmission Date: 20180509
  Serious: No
  Sender: FDA-Public Use
  Company Number: US-SHIRE-US201734151

PATIENT
  Age: 76 Year
  Sex: Female

DRUGS (2)
  1. XIIDRA [Suspect]
     Active Substance: LIFITEGRAST
     Indication: PRODUCT USED FOR UNKNOWN INDICATION
     Route: 047
  2. LOTEMAX [Suspect]
     Active Substance: LOTEPREDNOL ETABONATE
     Indication: DRY EYE
     Route: 047

REACTIONS (5)
  - Vision blurred [Unknown]
  - Instillation site erythema [Unknown]
  - Product quality issue [Unknown]
  - Lacrimation increased [Unknown]
  - Instillation site pain [Unknown]

NARRATIVE: CASE EVENT DATE: 20171212
